FAERS Safety Report 12387560 (Version 1)
Quarter: 2016Q2

REPORT INFORMATION
  Report Type: Spontaneous
  Country: GB (occurrence: GB)
  Receive Date: 20160520
  Receipt Date: 20160520
  Transmission Date: 20160815
  Serious: Yes (Other)
  Sender: FDA-Public Use
  Company Number: GB-AUROBINDO-AUR-APL-2016-06000

PATIENT
  Sex: Male

DRUGS (2)
  1. CLARITHROMYCIN FILM-COATED TABLETS 500MG [Suspect]
     Active Substance: CLARITHROMYCIN
     Indication: LOWER RESPIRATORY TRACT INFECTION
     Dosage: 500 MG, TWO TIMES A DAY, 5 TABLETS LEFT
     Route: 048
     Dates: start: 20160330
  2. ALLOPURINOL. [Concomitant]
     Active Substance: ALLOPURINOL
     Indication: GOUT
     Dosage: 100 MG, ONCE A DAY
     Route: 048

REACTIONS (1)
  - Gout [Unknown]
